FAERS Safety Report 11661614 (Version 1)
Quarter: 2015Q4

REPORT INFORMATION
  Report Type: Spontaneous
  Country: US (occurrence: US)
  Receive Date: 20151026
  Receipt Date: 20151026
  Transmission Date: 20160304
  Serious: No
  Sender: FDA-Public Use
  Company Number: US-PFIZER INC-2015356529

PATIENT
  Sex: Male

DRUGS (13)
  1. DEMEROL [Suspect]
     Active Substance: MEPERIDINE HYDROCHLORIDE
     Dosage: UNK
  2. FELBAMATE. [Suspect]
     Active Substance: FELBAMATE
     Dosage: UNK
  3. FORADIL [Suspect]
     Active Substance: FORMOTEROL FUMARATE
     Dosage: UNK
     Route: 045
  4. OXYCODONE [Suspect]
     Active Substance: OXYCODONE
     Dosage: UNK
  5. CARBAMAZEPINE. [Suspect]
     Active Substance: CARBAMAZEPINE
     Dosage: UNK
  6. CODEINE [Suspect]
     Active Substance: CODEINE
     Dosage: UNK
  7. CORTISONE [Suspect]
     Active Substance: CORTISONE\HYDROCORTISONE
     Dosage: UNK
  8. BACTRIM [Suspect]
     Active Substance: SULFAMETHOXAZOLE\TRIMETHOPRIM
     Dosage: UNK
  9. FELBATOL [Suspect]
     Active Substance: FELBAMATE
     Dosage: UNK
  10. IODINE [Suspect]
     Active Substance: IODINE
     Dosage: UNK
  11. PERCOCET [Suspect]
     Active Substance: ACETAMINOPHEN\OXYCODONE HYDROCHLORIDE
     Dosage: UNK
  12. NORVASC [Suspect]
     Active Substance: AMLODIPINE BESYLATE
     Dosage: UNK
  13. LITHIUM CARBONATE. [Suspect]
     Active Substance: LITHIUM CARBONATE
     Dosage: UNK

REACTIONS (1)
  - Drug hypersensitivity [Unknown]
